FAERS Safety Report 8139795-2 (Version None)
Quarter: 2012Q1

REPORT INFORMATION
  Report Type: 
  Country: None (occurrence: None)
  Receive Date: 20120215
  Receipt Date: 20120202
  Transmission Date: 20120608
  Serious: Yes (Other)
  Sender: FDA-Public Use
  Company Number: US-CELGENEUS-163-C5013-12020432

PATIENT
  Sex: Male
  Weight: 109.9 kg

DRUGS (39)
  1. FUROSEMIDE [Concomitant]
     Dosage: 40 MILLIGRAM
     Route: 048
     Dates: start: 20101007, end: 20101116
  2. FUROSEMIDE [Concomitant]
     Dosage: 40 MILLIGRAM
     Route: 048
     Dates: start: 20101117, end: 20101129
  3. METOCLOPRAMIDE [Concomitant]
     Indication: HYPERTENSION
     Dosage: 50 MILLIGRAM
     Route: 048
     Dates: start: 20060101, end: 20110207
  4. VICODIN [Concomitant]
     Indication: BACK PAIN
     Route: 048
     Dates: start: 20100907
  5. GLIPIZIDE [Concomitant]
     Dosage: 10 MILLIGRAM
     Route: 048
     Dates: start: 20110527
  6. GABAPENTIN [Concomitant]
     Indication: DIABETIC NEUROPATHY
     Dosage: 100 MILLIGRAM
     Route: 048
     Dates: start: 20110722, end: 20110724
  7. MULTI-VITAMINS [Concomitant]
     Indication: VITAMIN SUPPLEMENTATION
  8. MELPHALAN HYDROCHLORIDE [Suspect]
     Indication: MULTIPLE MYELOMA
     Route: 065
     Dates: start: 20100827, end: 20101004
  9. MEDROL [Concomitant]
     Indication: GOUT
  10. GLYBURIDE [Concomitant]
     Dosage: 10 MILLIGRAM
     Route: 048
     Dates: start: 20080227, end: 20110101
  11. CALCIUM CARBONATE [Concomitant]
     Route: 048
     Dates: start: 20101027, end: 20101101
  12. COLCHICINE [Concomitant]
     Indication: GOUT
     Dosage: .6 MILLIGRAM
     Route: 048
     Dates: start: 20101030, end: 20101031
  13. COLCHICINE [Concomitant]
     Dosage: .6 MILLIGRAM
     Route: 048
     Dates: start: 20101207, end: 20101208
  14. GLYBURIDE [Concomitant]
     Dosage: 2.5 MILLIGRAM
     Route: 048
     Dates: start: 20080227, end: 20110101
  15. FUROSEMIDE [Concomitant]
     Dosage: 40 MILLIGRAM
     Route: 048
     Dates: start: 20101130, end: 20101201
  16. FUROSEMIDE [Concomitant]
     Dosage: 40 MILLIGRAM
     Route: 048
     Dates: start: 20101202, end: 20110413
  17. COLCHICINE [Concomitant]
     Dosage: 4 MILLIGRAM
     Route: 048
     Dates: start: 20110512, end: 20110515
  18. ATIVAN [Concomitant]
     Indication: NAUSEA
     Dosage: .5 MILLIGRAM
     Route: 048
     Dates: start: 20101209, end: 20101214
  19. GABAPENTIN [Concomitant]
     Dosage: 100 MILLIGRAM
     Route: 048
     Dates: start: 20110725, end: 20110801
  20. THALIDOMIDE [Suspect]
     Indication: MULTIPLE MYELOMA
     Dosage: 200 MILLIGRAM
     Route: 048
     Dates: start: 20100824, end: 20101004
  21. PREDNISONE TAB [Suspect]
     Indication: MULTIPLE MYELOMA
     Dosage: 230 MILLIGRAM
     Route: 065
     Dates: start: 20100824, end: 20101004
  22. FUROSEMIDE [Concomitant]
     Dosage: 40 MILLIGRAM
     Route: 048
     Dates: start: 20060101, end: 20100929
  23. FUROSEMIDE [Concomitant]
     Dosage: 40 MILLIGRAM/MILLILITERS
     Route: 048
     Dates: start: 20100930, end: 20101006
  24. ACYCLOVIR [Concomitant]
  25. FUROSEMIDE [Concomitant]
     Dosage: 80 MILLIGRAM
     Route: 048
     Dates: start: 20100930, end: 20101006
  26. WARFARIN SODIUM [Concomitant]
     Indication: PROPHYLAXIS
     Dosage: 7.5-10MG
     Route: 048
     Dates: start: 20070508
  27. POTASSIUM CHLORIDE [Concomitant]
     Dosage: 20 MILLIEQUIVALENTS
     Route: 048
     Dates: start: 20101123, end: 20110713
  28. METFORMIN HCL [Concomitant]
     Dosage: 1000 MILLIGRAM
     Route: 048
     Dates: start: 20060101, end: 20110526
  29. EQUATE STOOL SOFTENER [Concomitant]
     Indication: CONSTIPATION
     Dosage: 100 MILLIGRAM
     Route: 048
     Dates: start: 20100907
  30. DARBEPOETIN ALFA-ALBUMIN [Concomitant]
     Dosage: 300 MICROGRAM
     Route: 058
     Dates: start: 20101207
  31. FUROSEMIDE [Concomitant]
     Dosage: 20 MILLIGRAM
     Route: 041
     Dates: start: 20100908, end: 20100908
  32. POTASSIUM CHLORIDE [Concomitant]
     Dosage: 20 MILLIEQUIVALENTS
     Route: 048
     Dates: start: 20060101, end: 20101122
  33. LISINOPRIL [Concomitant]
     Indication: HYPERTENSION
     Dosage: 10 MILLIGRAM
     Route: 048
     Dates: start: 20060101
  34. MIRALAX [Concomitant]
     Indication: CONSTIPATION
     Route: 048
     Dates: start: 20100907
  35. ACETAMINOPHEN [Concomitant]
     Dosage: 500 MILLIGRAM
     Route: 048
     Dates: start: 20100901
  36. CALCIUM CARBONATE [Concomitant]
     Route: 048
     Dates: start: 20101102, end: 20101207
  37. ZOMETA [Concomitant]
     Indication: BONE DISORDER
     Dosage: 4 MILLIGRAM
     Route: 041
     Dates: start: 20100824, end: 20101012
  38. CALCIUM CARBONATE [Concomitant]
     Dosage: 1250 MILLIGRAM
     Route: 048
     Dates: start: 20101208
  39. FISH OIL [Concomitant]

REACTIONS (1)
  - MYELODYSPLASTIC SYNDROME [None]
